FAERS Safety Report 23678271 (Version 1)
Quarter: 2024Q1

REPORT INFORMATION
  Report Type: Spontaneous
  Country: US (occurrence: None)
  Receive Date: 20240326
  Receipt Date: 20240326
  Transmission Date: 20240410
  Serious: Yes (Disabling)
  Sender: FDA-Public Use
  Company Number: None

PATIENT
  Age: 80 Year
  Sex: Male
  Weight: 72.57 kg

DRUGS (8)
  1. SOLIFENACIN [Suspect]
     Active Substance: SOLIFENACIN
     Indication: Urinary tract disorder
     Dosage: 1 PILL 1 X MOUTH?
     Route: 048
     Dates: start: 20221115, end: 20230202
  2. CYCLOBENZAPRINE [Suspect]
     Active Substance: CYCLOBENZAPRINE
     Indication: Sciatica
  3. FOSINOPRIL [Concomitant]
     Active Substance: FOSINOPRIL
  4. AMLODIPINE BESYLATE [Concomitant]
     Active Substance: AMLODIPINE BESYLATE
  5. ATORVSTATIN [Concomitant]
  6. OMEPRAZOLE [Concomitant]
     Active Substance: OMEPRAZOLE
  7. SIMETHICONE (DIMETHICONE) [Concomitant]
     Active Substance: DIMETHICONE
  8. MELATONIN [Concomitant]
     Active Substance: MELATONIN

REACTIONS (3)
  - Hallucination, auditory [None]
  - Insomnia [None]
  - Sciatica [None]

NARRATIVE: CASE EVENT DATE: 20230707
